FAERS Safety Report 12629077 (Version 4)
Quarter: 2017Q1

REPORT INFORMATION
  Report Type: Report from Study
  Country: AU (occurrence: AU)
  Receive Date: 20160808
  Receipt Date: 20170118
  Transmission Date: 20170428
  Serious: Yes (Other)
  Sender: FDA-Public Use
  Company Number: AU-AMGEN-AUSSL2016100285

PATIENT
  Age: 72 Year
  Sex: Male

DRUGS (1)
  1. REPATHA [Suspect]
     Active Substance: EVOLOCUMAB
     Indication: TYPE IIA HYPERLIPIDAEMIA
     Dosage: 140 MG, Q2WK (FORTNIGHTLY)
     Route: 058
     Dates: start: 20160615, end: 20161102

REACTIONS (7)
  - Lethargy [Recovered/Resolved]
  - Memory impairment [Recovered/Resolved]
  - Muscle spasms [Not Recovered/Not Resolved]
  - Cognitive disorder [Recovered/Resolved]
  - Fatigue [Unknown]
  - Limb injury [Recovered/Resolved]
  - Foot fracture [Recovered/Resolved]
